FAERS Safety Report 16262236 (Version 6)
Quarter: 2019Q3

REPORT INFORMATION
  Report Type: Report from Study
  Country: CN (occurrence: CN)
  Receive Date: 20190501
  Receipt Date: 20190708
  Transmission Date: 20191004
  Serious: Yes (Other)
  Sender: FDA-Public Use
  Company Number: CN-CELGENEUS-CHN-20190410730

PATIENT
  Age: 59 Year
  Sex: Male
  Weight: 68 kg

DRUGS (9)
  1. CIMETIDINE [Concomitant]
     Active Substance: CIMETIDINE
     Indication: PROPHYLAXIS
     Route: 065
     Dates: start: 20190320, end: 20190322
  2. TROPISETRON HYDROCHLORIDE AND SODIUM CHLORIDE [Concomitant]
     Indication: VOMITING
     Route: 065
     Dates: start: 20190320, end: 20190322
  3. RECOMBINANT HUMAN GRANULOCYTE COLONY STIMULATING FACTOR [Concomitant]
     Indication: WHITE BLOOD CELL COUNT DECREASED
     Route: 065
     Dates: start: 20190326, end: 20190327
  4. COMPOUND RESERPINE [Concomitant]
     Indication: HYPERTENSION
     Route: 065
     Dates: start: 201401, end: 20190419
  5. CARBOPLATIN. [Suspect]
     Active Substance: CARBOPLATIN
     Indication: SQUAMOUS CELL CARCINOMA OF LUNG
     Route: 041
     Dates: start: 20181109
  6. BGB-A317/TISLELIZUMAB [Suspect]
     Active Substance: TISLELIZUMAB
     Indication: SQUAMOUS CELL CARCINOMA OF LUNG
     Dosage: 200 MILLIGRAM
     Route: 041
     Dates: start: 20181109, end: 20190419
  7. DIAMMONIUM GLYCYRRHIZINATE [Concomitant]
     Active Substance: HERBALS\DIAMMONIUM GLYCYRRHIZINATE
     Indication: PROPHYLAXIS
  8. ABRAXANE [Suspect]
     Active Substance: PACLITAXEL
     Indication: SQUAMOUS CELL CARCINOMA OF LUNG
     Dosage: 120 MILLIGRAM
     Route: 041
     Dates: start: 20181109
  9. DIAMMONIUM GLYCYRRHIZINATE [Concomitant]
     Active Substance: HERBALS\DIAMMONIUM GLYCYRRHIZINATE
     Indication: LIVER FUNCTION TEST INCREASED
     Route: 065
     Dates: start: 20190418

REACTIONS (1)
  - Blood creatine phosphokinase increased [Recovered/Resolved]

NARRATIVE: CASE EVENT DATE: 20190418
